FAERS Safety Report 9167687 (Version 2)
Quarter: 2013Q2

REPORT INFORMATION
  Report Type: Report from Study
  Country: BR (occurrence: BR)
  Receive Date: 20130318
  Receipt Date: 20130418
  Transmission Date: 20140414
  Serious: Yes (Other)
  Sender: FDA-Public Use
  Company Number: PHHY2013BR025291

PATIENT
  Age: 74 Year
  Sex: Male
  Weight: 75 kg

DRUGS (9)
  1. ACLASTA [Suspect]
     Indication: OSTEOPOROSIS
     Dosage: 5 MG, UNK
     Route: 042
     Dates: start: 201302
  2. LIPITOR [Concomitant]
     Dosage: UNK
  3. LEVOID [Concomitant]
     Dosage: UNK
  4. ARADOIS [Concomitant]
     Dosage: UNK
  5. OMEPRAZOLE [Concomitant]
     Dosage: UNK UKN, UNK
  6. GLIFAGE [Concomitant]
     Dosage: UNK UKN, UNK
  7. FISH OIL [Concomitant]
     Dosage: UNK
  8. CALCIUM CITRATE [Concomitant]
     Dosage: UNK UKN, UNK
  9. LIPLESS [Concomitant]
     Dosage: UNK

REACTIONS (5)
  - Dysstasia [Not Recovered/Not Resolved]
  - Pain [Not Recovered/Not Resolved]
  - Dizziness [Not Recovered/Not Resolved]
  - Pain in extremity [Recovering/Resolving]
  - Local swelling [Recovering/Resolving]
